FAERS Safety Report 16073256 (Version 1)
Quarter: 2019Q1

REPORT INFORMATION
  Report Type: Other
  Country: US (occurrence: US)
  Receive Date: 20190314
  Receipt Date: 20190314
  Transmission Date: 20190418
  Serious: Yes (Hospitalization)
  Sender: FDA-Public Use
  Company Number: US-B. BRAUN MEDICAL INC.-2063992

PATIENT
  Sex: Female
  Weight: 1.36 kg

DRUGS (1)
  1. NUTRILIPID I.V. FAT EMULSION [Suspect]
     Active Substance: SOYBEAN OIL

REACTIONS (5)
  - Hepatic steatosis [None]
  - Cholestasis [None]
  - Splenomegaly [None]
  - Liver function test increased [None]
  - Jaundice [None]
